FAERS Safety Report 5689924-5 (Version None)
Quarter: 2008Q1

REPORT INFORMATION
  Report Type: 
  Country: None (occurrence: None)
  Receive Date: 20080331
  Receipt Date: 20080331
  Transmission Date: 20080703
  Serious: No
  Sender: FDA-Public Use
  Company Number: None

PATIENT
  Sex: Female
  Weight: 108.8633 kg

DRUGS (2)
  1. OXYCONTIN [Suspect]
     Indication: ARTHRALGIA
     Dosage: 80 MG TID PO
     Route: 048
     Dates: start: 20071001, end: 20080201
  2. OXYCONTIN [Suspect]
     Indication: BACK PAIN
     Dosage: 80 MG TID PO
     Route: 048
     Dates: start: 20071001, end: 20080201

REACTIONS (2)
  - PAIN [None]
  - THERAPEUTIC RESPONSE UNEXPECTED WITH DRUG SUBSTITUTION [None]
